FAERS Safety Report 6567795-2 (Version None)
Quarter: 2010Q1

REPORT INFORMATION
  Report Type: 
  Country: None (occurrence: None)
  Receive Date: 20100203
  Receipt Date: 20100125
  Transmission Date: 20100710
  Serious: No
  Sender: FDA-Public Use
  Company Number: DK-ASTRAZENECA-2010SE04298

PATIENT
  Age: 304 Month
  Sex: Male
  Weight: 86.4 kg

DRUGS (2)
  1. QUETIAPINE PROLONG [Suspect]
     Indication: SCHIZOPHRENIA
     Route: 048
     Dates: start: 20090418
  2. INSULINE [Concomitant]
     Indication: TYPE 1 DIABETES MELLITUS
     Dates: start: 20050101

REACTIONS (1)
  - WHITE BLOOD CELL COUNT DECREASED [None]
